FAERS Safety Report 7669959-3 (Version None)
Quarter: 2011Q3

REPORT INFORMATION
  Report Type: 
  Country: None (occurrence: None)
  Receive Date: 20110808
  Receipt Date: 20110727
  Transmission Date: 20111222
  Serious: Yes (Other)
  Sender: FDA-Public Use
  Company Number: PHHY2011GB62456

PATIENT
  Age: 51 Year
  Sex: Female

DRUGS (5)
  1. TACROLIMUS [Suspect]
     Indication: RENAL TRANSPLANT
     Route: 065
  2. MYCOPHENOLATE MOFETIL [Suspect]
     Indication: RENAL TRANSPLANT
     Dosage: 2 G, DAILY
     Route: 065
     Dates: start: 20040701
  3. AZATHIOPRINE [Suspect]
     Indication: RENAL TRANSPLANT
     Route: 065
  4. ANTI-THYMOCYTE GLOBULIN NOS [Suspect]
     Indication: RENAL TRANSPLANT
     Route: 065
  5. PREDNISOLONE [Suspect]
     Indication: RENAL TRANSPLANT

REACTIONS (2)
  - BRONCHIECTASIS [None]
  - HYPOGAMMAGLOBULINAEMIA [None]
